FAERS Safety Report 24904807 (Version 1)
Quarter: 2025Q1

REPORT INFORMATION
  Report Type: Report from Study
  Country: ZA (occurrence: ZA)
  Receive Date: 20250130
  Receipt Date: 20250130
  Transmission Date: 20250409
  Serious: Yes (Death)
  Sender: REGENERON
  Company Number: ZA-BAYER-2025A012627

PATIENT
  Sex: Male

DRUGS (1)
  1. EYLEA [Suspect]
     Active Substance: AFLIBERCEPT
     Indication: Neovascular age-related macular degeneration
     Dates: start: 20230307, end: 20241217

REACTIONS (1)
  - Death [Fatal]
